FAERS Safety Report 24390397 (Version 3)
Quarter: 2025Q1

REPORT INFORMATION
  Report Type: Spontaneous
  Country: AU (occurrence: AU)
  Receive Date: 20241003
  Receipt Date: 20250307
  Transmission Date: 20250409
  Serious: Yes (Hospitalization)
  Sender: DOUGLAS PHARMACEUTICALS
  Company Number: AU-TASMAN PHARMA, INC.-2024TSM00233

PATIENT
  Sex: Female

DRUGS (13)
  1. VERSACLOZ [Suspect]
     Active Substance: CLOZAPINE
     Dates: start: 20240708, end: 20240711
  2. VERSACLOZ [Suspect]
     Active Substance: CLOZAPINE
     Dates: start: 20240712, end: 20240718
  3. VERSACLOZ [Suspect]
     Active Substance: CLOZAPINE
     Dates: start: 20240719, end: 20240726
  4. VERSACLOZ [Suspect]
     Active Substance: CLOZAPINE
     Dates: start: 20240805, end: 20240812
  5. VERSACLOZ [Suspect]
     Active Substance: CLOZAPINE
     Dates: start: 20240813, end: 20240818
  6. VERSACLOZ [Suspect]
     Active Substance: CLOZAPINE
     Dates: start: 20240819, end: 20240923
  7. VERSACLOZ [Suspect]
     Active Substance: CLOZAPINE
     Dates: start: 20241003, end: 20241012
  8. VERSACLOZ [Suspect]
     Active Substance: CLOZAPINE
     Dates: start: 20241025, end: 20241223
  9. VERSACLOZ [Suspect]
     Active Substance: CLOZAPINE
     Dates: start: 20250220
  10. CLOZAPINE [Suspect]
     Active Substance: CLOZAPINE
     Dates: start: 20240727, end: 20240804
  11. CLOZAPINE [Suspect]
     Active Substance: CLOZAPINE
     Dates: start: 20240924, end: 20241002
  12. CLOZAPINE [Suspect]
     Active Substance: CLOZAPINE
     Dates: start: 20241013, end: 20241024
  13. CLOZAPINE [Suspect]
     Active Substance: CLOZAPINE
     Dates: start: 20241224, end: 20250206

REACTIONS (2)
  - Hospitalisation [Recovered/Resolved]
  - Therapy interrupted [Recovered/Resolved]

NARRATIVE: CASE EVENT DATE: 20250207
